FAERS Safety Report 17850780 (Version 1)
Quarter: 2020Q2

REPORT INFORMATION
  Report Type: Spontaneous
  Country: US (occurrence: US)
  Receive Date: 20200602
  Receipt Date: 20200602
  Transmission Date: 20200714
  Serious: No
  Sender: FDA-Public Use
  Company Number: None

PATIENT
  Age: 55 Year
  Sex: Male
  Weight: 81 kg

DRUGS (5)
  1. MEKTOVI [Suspect]
     Active Substance: BINIMETINIB
     Route: 048
     Dates: start: 20200117, end: 20200602
  2. BRAFTOVI [Suspect]
     Active Substance: ENCORAFENIB
     Indication: SCROTAL CANCER
     Route: 048
     Dates: start: 20200117, end: 20200602
  3. SYNTHROID [Concomitant]
     Active Substance: LEVOTHYROXINE SODIUM
  4. OXYCODONE [Concomitant]
     Active Substance: OXYCODONE
  5. MIRALAX [Concomitant]
     Active Substance: POLYETHYLENE GLYCOL 3350

REACTIONS (1)
  - Death [None]

NARRATIVE: CASE EVENT DATE: 20200602
